FAERS Safety Report 8341652-3 (Version None)
Quarter: 2012Q2

REPORT INFORMATION
  Report Type: 
  Country: None (occurrence: None)
  Receive Date: 20120507
  Receipt Date: 20120430
  Transmission Date: 20120825
  Serious: Yes (Other)
  Sender: FDA-Public Use
  Company Number: PL-PFIZER INC-2012105992

PATIENT
  Age: 3 Year
  Sex: Male

DRUGS (6)
  1. CYCLOSPORINE [Concomitant]
     Indication: GRAFT VERSUS HOST DISEASE
  2. METHYLPREDNISOLONE [Concomitant]
     Indication: GRAFT VERSUS HOST DISEASE
  3. ORTHOCLONE OKT3 [Concomitant]
     Indication: GRAFT VERSUS HOST DISEASE
  4. BUSULFAN [Suspect]
     Indication: BONE MARROW TRANSPLANT
     Dosage: 2X1 MG/KG BODY WEIGHT
     Route: 042
  5. ATG-FRESENIUS [Suspect]
     Indication: BONE MARROW TRANSPLANT
     Dosage: 3X20 MG/KG BODY WEIGHT, UNK
  6. FLUDARABINE PHOSPHATE [Suspect]
     Indication: BONE MARROW TRANSPLANT
     Dosage: 5X30 MG/M {SUP}2{/SUP}

REACTIONS (3)
  - LEUKOPENIA [None]
  - AGRANULOCYTOSIS [None]
  - MUCOSAL INFLAMMATION [None]
